FAERS Safety Report 9152276 (Version 1)
Quarter: 2013Q1

REPORT INFORMATION
  Report Type: Spontaneous
  Country: CA (occurrence: CA)
  Receive Date: 20130308
  Receipt Date: 20130308
  Transmission Date: 20140127
  Serious: Yes (Death)
  Sender: FDA-Public Use
  Company Number: CA-B.I. PHARMACEUTICALS,INC./RIDGEFIELD-2013-CN-00330CN

PATIENT
  Age: 79 Year
  Sex: Female

DRUGS (1)
  1. PRADAX [Suspect]
     Dosage: 300 MG
     Route: 048

REACTIONS (1)
  - Cerebral haemorrhage [Fatal]
